FAERS Safety Report 15774636 (Version 1)
Quarter: 2018Q4

REPORT INFORMATION
  Report Type: Spontaneous
  Country: GB (occurrence: GB)
  Receive Date: 20181230
  Receipt Date: 20181230
  Transmission Date: 20190205
  Serious: Yes (Hospitalization)
  Sender: FDA-Public Use
  Company Number: GB-TEVA-2018-GB-993238

PATIENT
  Age: 73 Year
  Sex: Male
  Weight: 92 kg

DRUGS (19)
  1. RAMIPRIL. [Concomitant]
     Active Substance: RAMIPRIL
  2. BISOPROLOL [Concomitant]
     Active Substance: BISOPROLOL
  3. DEXAMETHASONE. [Concomitant]
     Active Substance: DEXAMETHASONE
  4. SODIUM HYALURONATE [Concomitant]
     Active Substance: HYALURONATE SODIUM
  5. SALBUTAMOL [Concomitant]
     Active Substance: ALBUTEROL
  6. PARACETAMOL [Concomitant]
     Active Substance: ACETAMINOPHEN
  7. CETIRIZINE [Concomitant]
     Active Substance: CETIRIZINE HYDROCHLORIDE
  8. PREGABALIN. [Concomitant]
     Active Substance: PREGABALIN
  9. DERMOL [Concomitant]
     Active Substance: BENZALKONIUM CHLORIDE\CHLORHEXIDINE HYDROCHLORIDE\ISOPROPYL MYRISTATE\PARAFFIN
  10. DOCETAXEL. [Suspect]
     Active Substance: DOCETAXEL
     Indication: HORMONE-REFRACTORY PROSTATE CANCER
     Route: 042
     Dates: start: 20181122, end: 20181130
  11. OXYCODONE [Concomitant]
     Active Substance: OXYCODONE
  12. PREDNISOLONE. [Concomitant]
     Active Substance: PREDNISOLONE
  13. FERROUS SULFATE. [Concomitant]
     Active Substance: FERROUS SULFATE
  14. NORTRIPTYLINE [Concomitant]
     Active Substance: NORTRIPTYLINE
  15. APIXABAN [Concomitant]
     Active Substance: APIXABAN
  16. PREDNISOLONE. [Concomitant]
     Active Substance: PREDNISOLONE
  17. LANSOPRAZOLE. [Concomitant]
     Active Substance: LANSOPRAZOLE
  18. CLENIL MODULITE [Concomitant]
     Active Substance: BECLOMETHASONE DIPROPIONATE
  19. AMLODIPINE [Concomitant]
     Active Substance: AMLODIPINE BESYLATE

REACTIONS (17)
  - Pruritus [Unknown]
  - Pallor [Unknown]
  - Malaise [Unknown]
  - Unresponsive to stimuli [Unknown]
  - Rash vesicular [Not Recovered/Not Resolved]
  - Mouth ulceration [Unknown]
  - Hyponatraemia [Unknown]
  - Bacterial sepsis [Recovering/Resolving]
  - Tonsillitis [Unknown]
  - Somnolence [Unknown]
  - Confusional state [Unknown]
  - Acute kidney injury [Unknown]
  - Productive cough [Unknown]
  - Faeces discoloured [Unknown]
  - Diarrhoea [Unknown]
  - Hypovolaemia [Unknown]
  - Erythema [Unknown]

NARRATIVE: CASE EVENT DATE: 20181124
